FAERS Safety Report 15594830 (Version 1)
Quarter: 2018Q4

REPORT INFORMATION
  Report Type: Spontaneous
  Country: SE (occurrence: SE)
  Receive Date: 20181106
  Receipt Date: 20181106
  Transmission Date: 20190205
  Serious: Yes (Other)
  Sender: FDA-Public Use
  Company Number: SE-009507513-1811SWE000533

PATIENT
  Age: 76 Year
  Sex: Male

DRUGS (8)
  1. ROCURONIUM BROMIDE. [Suspect]
     Active Substance: ROCURONIUM BROMIDE
     Indication: AORTIC SURGERY
     Dosage: 100  MG DURING DURATION/ 25 MG EVERY 2 HOURS
     Dates: start: 20181007, end: 20181007
  2. PRAXBIND [Interacting]
     Active Substance: IDARUCIZUMAB
     Indication: PROCOAGULANT THERAPY
     Dosage: BATCH NUMBER IS REQUESTED
     Route: 042
     Dates: start: 20181007, end: 20181007
  3. SILDENAFIL CITRATE. [Concomitant]
     Active Substance: SILDENAFIL CITRATE
  4. PRADAXA [Concomitant]
     Active Substance: DABIGATRAN ETEXILATE MESYLATE
  5. ENALAPRIL [Concomitant]
     Active Substance: ENALAPRIL
  6. BISOPROLOL [Concomitant]
     Active Substance: BISOPROLOL
  7. ATORVASTATIN [Concomitant]
     Active Substance: ATORVASTATIN
  8. NITROLINGUAL [Concomitant]
     Active Substance: NITROGLYCERIN

REACTIONS (2)
  - Drug interaction [Recovered/Resolved]
  - Drug effect decreased [Recovered/Resolved]

NARRATIVE: CASE EVENT DATE: 20181007
